FAERS Safety Report 7057552-5 (Version None)
Quarter: 2010Q4

REPORT INFORMATION
  Report Type: 
  Country: None (occurrence: None)
  Receive Date: 20101022
  Receipt Date: 20101021
  Transmission Date: 20110411
  Serious: Yes (Death)
  Sender: FDA-Public Use
  Company Number: PHHO2010AU15630

PATIENT
  Sex: Female
  Weight: 48 kg

DRUGS (1)
  1. AFINITOR [Suspect]
     Indication: SYNOVIAL SARCOMA METASTATIC
     Dosage: 10 MG, DAILY
     Route: 048
     Dates: start: 20100604

REACTIONS (1)
  - MALIGNANT NEOPLASM PROGRESSION [None]
